FAERS Safety Report 9177397 (Version 4)
Quarter: 2017Q2

REPORT INFORMATION
  Report Type: Spontaneous
  Country: BR (occurrence: BR)
  Receive Date: 20130321
  Receipt Date: 20170630
  Transmission Date: 20170830
  Serious: Yes (Other)
  Sender: FDA-Public Use
  Company Number: BR-AMGEN-BRACT2011013943

PATIENT
  Age: 47 Year
  Sex: Female
  Weight: 60 kg

DRUGS (9)
  1. NAPRIX [Concomitant]
     Active Substance: RAMIPRIL
     Indication: HYPERTENSION
     Dosage: UNK MG, UNK
     Dates: start: 20120817
  2. ENBREL [Suspect]
     Active Substance: ETANERCEPT
     Indication: RHEUMATOID ARTHRITIS
     Dosage: 50 MG, WEEKLY
     Route: 058
     Dates: start: 2010
  3. ARAVA [Concomitant]
     Active Substance: LEFLUNOMIDE
     Indication: ARTHRITIS
     Dosage: 20 MG, 1X/DAY
     Dates: start: 2006
  4. OTILONIUM BROMIDE [Concomitant]
     Active Substance: OTILONIUM BROMIDE
     Indication: PRODUCT USED FOR UNKNOWN INDICATION
     Dosage: UNK
  5. LEFLUNOMIDE. [Concomitant]
     Active Substance: LEFLUNOMIDE
     Indication: RHEUMATOID ARTHRITIS
     Dosage: UNK MG, UNK
  6. ENBREL [Suspect]
     Active Substance: ETANERCEPT
     Dosage: 50 MG, ONCE A WEEK
     Route: 058
     Dates: start: 201209, end: 20170620
  7. OMEPRAZOLE. [Concomitant]
     Active Substance: OMEPRAZOLE
     Dosage: UNK
  8. MIFLONIDE [Concomitant]
     Active Substance: BUDESONIDE
     Dosage: UNK
  9. LONIUM [Concomitant]
     Dosage: UNK

REACTIONS (21)
  - Product quality issue [Unknown]
  - Cardiac disorder [Unknown]
  - Fluid retention [Unknown]
  - Fibrosis [Unknown]
  - Diarrhoea [Unknown]
  - Paraesthesia [Recovered/Resolved]
  - Injection site oedema [Unknown]
  - Injection site induration [Unknown]
  - Rash macular [Unknown]
  - Hypersensitivity [Unknown]
  - Injection site warmth [Unknown]
  - Injection site pain [Unknown]
  - Hypertension [Unknown]
  - Weight increased [Unknown]
  - Injection site pruritus [Unknown]
  - Oesophageal ulcer [Unknown]
  - Infusion site vesicles [Unknown]
  - Fibroma [Unknown]
  - Dizziness [Unknown]
  - Injection site erythema [Unknown]
  - Injection site haematoma [Unknown]

NARRATIVE: CASE EVENT DATE: 20110221
